FAERS Safety Report 15208240 (Version 1)
Quarter: 2018Q4

REPORT INFORMATION
  Report Type: Spontaneous
  Country: US (occurrence: US)
  Receive Date: 20180727
  Receipt Date: 20180727
  Transmission Date: 20190204
  Serious: No
  Sender: FDA-Public Use
  Company Number: US-ASTRAZENECA-2018SE86361

PATIENT
  Age: 91 Year
  Sex: Male

DRUGS (3)
  1. SYMBICORT [Suspect]
     Active Substance: BUDESONIDE\FORMOTEROL FUMARATE DIHYDRATE
     Indication: CHRONIC OBSTRUCTIVE PULMONARY DISEASE
     Dosage: CONSISTENTLY USE AFTER RUNNING OUT OF SYMBICORT US UNKNOWN
     Route: 055
     Dates: start: 201602
  2. SYMBICORT [Suspect]
     Active Substance: BUDESONIDE\FORMOTEROL FUMARATE DIHYDRATE
     Indication: CHRONIC OBSTRUCTIVE PULMONARY DISEASE
     Dosage: 2 PUFFS ONCE DAILY
     Route: 055
     Dates: start: 201602
  3. ALBUTEROL. [Concomitant]
     Active Substance: ALBUTEROL
     Indication: DEVICE USE ISSUE
     Dosage: 0.05UG/INHAL TWO TIMES A DAY
     Route: 055
     Dates: start: 201510

REACTIONS (8)
  - Product dose omission [Unknown]
  - Visual impairment [Unknown]
  - Bronchial irritation [Unknown]
  - Intentional product misuse [Unknown]
  - Amnesia [Unknown]
  - Osteoarthritis [Unknown]
  - Drug effect delayed [Unknown]
  - Off label use [Unknown]

NARRATIVE: CASE EVENT DATE: 20180622
